FAERS Safety Report 5781688-X (Version None)
Quarter: 2008Q2

REPORT INFORMATION
  Report Type: 
  Country: None (occurrence: None)
  Receive Date: 20080623
  Receipt Date: 20070430
  Transmission Date: 20081010
  Serious: No
  Sender: FDA-Public Use
  Company Number: US-ASTRAZENECA-2007UW08579

PATIENT
  Age: 69 Year
  Sex: Male
  Weight: 63.5 kg

DRUGS (4)
  1. RHINOCORT [Suspect]
     Route: 045
     Dates: start: 20070330
  2. LIPITOR [Concomitant]
  3. PLAVIX [Concomitant]
  4. TOPROL-XL [Concomitant]
     Route: 048

REACTIONS (1)
  - ABDOMINAL PAIN [None]
